FAERS Safety Report 8783506 (Version 1)
Quarter: 2012Q4

REPORT INFORMATION
  Report Type: 
  Country: US (occurrence: US)
  Receive Date: 20120913
  Receipt Date: 20120913
  Transmission Date: 20130627
  Serious: Yes (Death, Other)
  Sender: FDA-Public Use
  Company Number: PHHY2012US078724

PATIENT
  Age: 15 Year
  Sex: Male

DRUGS (3)
  1. MYCOPHENOLATE MOFETIL [Suspect]
     Indication: IMMUNOSUPPRESSION
  2. PREDNISONE [Suspect]
     Indication: IMMUNOSUPPRESSION
  3. TACROLIMUS [Suspect]
     Indication: IMMUNOSUPPRESSION

REACTIONS (24)
  - Death [Fatal]
  - Sarcoidosis [Unknown]
  - Lymphadenopathy [Unknown]
  - Lymphadenitis [Unknown]
  - Isosthenuria [Unknown]
  - Nephrolithiasis [Unknown]
  - Hepatosplenomegaly [Unknown]
  - Kidney fibrosis [Unknown]
  - Lung infiltration [Unknown]
  - Renal impairment [Unknown]
  - Hypothyroidism [Unknown]
  - Failure to thrive [Unknown]
  - Polyuria [Unknown]
  - Polydipsia [Unknown]
  - Hypercalcaemia [Unknown]
  - Glomerulosclerosis [Unknown]
  - Myocardial ischaemia [Unknown]
  - Coronary ostial stenosis [Unknown]
  - Aortic stenosis [Unknown]
  - Aortic calcification [Unknown]
  - Coronary artery stenosis [Unknown]
  - Left ventricular hypertrophy [Unknown]
  - Left ventricular dysfunction [Unknown]
  - Osteopenia [Unknown]
